FAERS Safety Report 15192169 (Version 4)
Quarter: 2018Q3

REPORT INFORMATION
  Report Type: Report from Study
  Country: PL (occurrence: PL)
  Receive Date: 20180724
  Receipt Date: 20180905
  Transmission Date: 20181010
  Serious: Yes (Hospitalization)
  Sender: FDA-Public Use
  Company Number: PL-BIOGEN-2018BI00606513

PATIENT
  Age: 49 Year
  Sex: Male
  Weight: 76 kg

DRUGS (2)
  1. DACLIZUMAB HYP [Suspect]
     Active Substance: DACLIZUMAB
     Indication: MULTIPLE SCLEROSIS
     Route: 058
     Dates: start: 20140211, end: 20180215
  2. KERAL [Concomitant]
     Indication: PYREXIA
     Route: 048
     Dates: start: 20180625, end: 20180702

REACTIONS (1)
  - Chronic sinusitis [Recovered/Resolved with Sequelae]

NARRATIVE: CASE EVENT DATE: 20180708
